FAERS Safety Report 7392090-1 (Version None)
Quarter: 2011Q2

REPORT INFORMATION
  Report Type: 
  Country: None (occurrence: None)
  Receive Date: 20110404
  Receipt Date: 20110324
  Transmission Date: 20111010
  Serious: Yes (Hospitalization)
  Sender: FDA-Public Use
  Company Number: A0772869A

PATIENT
  Age: 45 Year
  Sex: Female
  Weight: 131.8 kg

DRUGS (3)
  1. AVANDIA [Suspect]
     Indication: DIABETES MELLITUS
     Route: 048
     Dates: start: 19990101, end: 20020211
  2. SINGULAIR [Concomitant]
  3. PROCARDIA [Concomitant]

REACTIONS (4)
  - CARDIAC FAILURE CONGESTIVE [None]
  - SLEEP APNOEA SYNDROME [None]
  - WEIGHT INCREASED [None]
  - CARDIAC DISORDER [None]
